FAERS Safety Report 8106329-8 (Version None)
Quarter: 2012Q1

REPORT INFORMATION
  Report Type: 
  Country: None (occurrence: None)
  Receive Date: 20120202
  Receipt Date: 20120124
  Transmission Date: 20120608
  Serious: Yes (Hospitalization, Other)
  Sender: FDA-Public Use
  Company Number: US-BAYER-200933611NA

PATIENT
  Age: 26 Year
  Sex: Female
  Weight: 55 kg

DRUGS (8)
  1. PROMETHAZINE - CODEINE [CITRIC AC,CODEINE,PROMETHAZ,NA+ CITR AC,SU [Concomitant]
     Dosage: UNK
  2. VICODIN [Concomitant]
     Dosage: UNK
  3. AMOXICILLIN [Concomitant]
     Dosage: 1000 MG, BID
     Dates: start: 20060906, end: 20060920
  4. YAZ [Suspect]
     Route: 048
     Dates: start: 20061101, end: 20061201
  5. TERAZOL 7 [Concomitant]
     Dosage: 0.4 %, UNK
     Dates: start: 20060920
  6. YASMIN [Suspect]
     Route: 048
     Dates: start: 20061101, end: 20061201
  7. PRENATAL VITAMINS [VIT C,VIT H,MIN NOS,VIT PP,RETINOL,VIT E,VIT B [Concomitant]
     Dosage: UNK
  8. LUNESTA [Concomitant]
     Indication: SLEEP DISORDER THERAPY
     Dosage: UNK
     Dates: start: 20061113, end: 20070129

REACTIONS (5)
  - CHOLECYSTITIS CHRONIC [None]
  - GALLBLADDER DISORDER [None]
  - THROMBOSIS [None]
  - TRANSIENT ISCHAEMIC ATTACK [None]
  - CEREBROVASCULAR ACCIDENT [None]
